FAERS Safety Report 11052379 (Version 4)
Quarter: 2015Q2

REPORT INFORMATION
  Report Type: Report from Study
  Country: US (occurrence: US)
  Receive Date: 20150421
  Receipt Date: 20150514
  Transmission Date: 20150821
  Serious: Yes (Life-Threatening, Hospitalization, Disabling)
  Sender: FDA-Public Use
  Company Number: PHEH2015US007536

PATIENT
  Sex: Male
  Weight: 59.86 kg

DRUGS (3)
  1. VELCADE [Concomitant]
     Active Substance: BORTEZOMIB
     Indication: PRODUCT USED FOR UNKNOWN INDICATION
     Route: 065
  2. FARYDAK [Suspect]
     Active Substance: PANOBINOSTAT
     Dosage: 15 MG,QD
     Route: 048
  3. FARYDAK [Suspect]
     Active Substance: PANOBINOSTAT
     Indication: PLASMA CELL MYELOMA
     Dosage: 20 MG, QW3 M W F
     Route: 048
     Dates: start: 20150408

REACTIONS (3)
  - Oropharyngeal discomfort [Recovered/Resolved]
  - Drug hypersensitivity [Recovered/Resolved]
  - Pneumonia [Unknown]
